FAERS Safety Report 5023726-8 (Version None)
Quarter: 2006Q2

REPORT INFORMATION
  Report Type: 
  Country: None (occurrence: None)
  Receive Date: 20060606
  Receipt Date: 20060314
  Transmission Date: 20061013
  Serious: Yes (Death, Hospitalization)
  Sender: FDA-Public Use
  Company Number: ABX36-06-0119

PATIENT
  Age: 83 Year
  Sex: Male
  Weight: 57.6068 kg

DRUGS (13)
  1. ABRAXANE [Suspect]
     Indication: NON-SMALL CELL LUNG CANCER
     Dosage: 462 MG EVERY 3 WEEKS; OFF STUDY
     Dates: start: 20060228, end: 20060228
  2. ABRAXANE [Suspect]
     Indication: NON-SMALL CELL LUNG CANCER
     Dosage: 462 MG EVERY 3 WEEKS; OFF STUDY
     Dates: start: 20060317
  3. CARBOPLATIN [Suspect]
     Indication: NON-SMALL CELL LUNG CANCER
     Dosage: 332.82 MG EVERY 3 WEEKS; OFF STUDY
     Dates: start: 20060228, end: 20060228
  4. CARBOPLATIN [Suspect]
     Indication: NON-SMALL CELL LUNG CANCER
     Dosage: 332.82 MG EVERY 3 WEEKS; OFF STUDY
     Dates: start: 20060317
  5. AVASTIN [Suspect]
     Indication: NON-SMALL CELL LUNG CANCER
     Dosage: 865.9 MG EVERY 3 WEEKS; OFF STUDY
     Dates: start: 20060228, end: 20060228
  6. AVASTIN [Suspect]
     Indication: NON-SMALL CELL LUNG CANCER
     Dosage: 865.9 MG EVERY 3 WEEKS; OFF STUDY
     Dates: start: 20060317
  7. CRESTOR [Concomitant]
  8. TOPROL-XL [Concomitant]
  9. ASPIRIN [Concomitant]
  10. TYLENOL WITH CODEINE (PANADEINE CO) [Concomitant]
  11. LEVAQUIN [Concomitant]
  12. OXYGEN (OXYGEN) [Concomitant]
  13. NEULASTA [Concomitant]

REACTIONS (15)
  - ASTHENIA [None]
  - AZOTAEMIA [None]
  - BLOOD CHLORIDE DECREASED [None]
  - BLOOD SODIUM DECREASED [None]
  - CHRONIC OBSTRUCTIVE PULMONARY DISEASE [None]
  - CONDITION AGGRAVATED [None]
  - DEHYDRATION [None]
  - DYSPHAGIA [None]
  - EPISTAXIS [None]
  - FATIGUE [None]
  - FLUID INTAKE REDUCED [None]
  - GENERAL PHYSICAL HEALTH DETERIORATION [None]
  - HYPERKALAEMIA [None]
  - NEUTROPENIA [None]
  - PNEUMONIA [None]
